FAERS Safety Report 11708013 (Version 1)
Quarter: 2015Q4

REPORT INFORMATION
  Report Type: Spontaneous
  Country: US (occurrence: US)
  Receive Date: 20151107
  Receipt Date: 20151107
  Transmission Date: 20160304
  Serious: No
  Sender: FDA-Public Use
  Company Number: PHEH2015US022037

PATIENT
  Age: 87 Year
  Sex: Female
  Weight: 58 kg

DRUGS (1)
  1. AFINITOR [Suspect]
     Active Substance: EVEROLIMUS
     Indication: CARCINOID TUMOUR PULMONARY
     Dosage: 7.5 MG, QD
     Route: 048
     Dates: start: 20151008

REACTIONS (2)
  - Weight decreased [Unknown]
  - Mouth ulceration [Recovering/Resolving]

NARRATIVE: CASE EVENT DATE: 20151013
